FAERS Safety Report 5371883-6 (Version None)
Quarter: 2007Q2

REPORT INFORMATION
  Report Type: 
  Country: None (occurrence: None)
  Receive Date: 20070627
  Receipt Date: 20070626
  Transmission Date: 20071010
  Serious: Yes (Death, Hospitalization)
  Sender: FDA-Public Use
  Company Number: GB-JNJFOC-20070605715

PATIENT
  Age: 48 Year
  Sex: Male

DRUGS (4)
  1. RISPERIDONE [Suspect]
     Indication: DRUG USE FOR UNKNOWN INDICATION
     Route: 065
  2. FLUOXETINE [Concomitant]
     Route: 065
  3. OMEPRAZOLE [Concomitant]
     Route: 065
  4. SIMVASTATIN [Concomitant]
     Route: 065

REACTIONS (1)
  - MULTI-ORGAN FAILURE [None]
